FAERS Safety Report 6707748-4 (Version None)
Quarter: 2010Q2

REPORT INFORMATION
  Report Type: 
  Country: None (occurrence: None)
  Receive Date: 20100503
  Receipt Date: 20090323
  Transmission Date: 20101027
  Serious: No
  Sender: FDA-Public Use
  Company Number: US-ASTRAZENECA-2009UW07404

PATIENT
  Age: 81 Year
  Sex: Female
  Weight: 49.9 kg

DRUGS (4)
  1. NEXIUM [Suspect]
     Indication: GASTROOESOPHAGEAL REFLUX DISEASE
     Route: 048
     Dates: start: 20070101
  2. XOPENEX [Concomitant]
  3. ALPRAZOLAM [Concomitant]
  4. MIRALAX [Concomitant]

REACTIONS (3)
  - BURNING MOUTH SYNDROME [None]
  - CHEST PAIN [None]
  - INCREASED BRONCHIAL SECRETION [None]
